FAERS Safety Report 8760448 (Version 1)
Quarter: 2012Q4

REPORT INFORMATION
  Report Type: Spontaneous
  Country: US (occurrence: None)
  Receive Date: 20120829
  Receipt Date: 20120829
  Transmission Date: 20130627
  Serious: Yes (Other)
  Sender: FDA-Public Use
  Company Number: None

PATIENT
  Age: 63 Year
  Sex: Male
  Weight: 63.5 kg

DRUGS (1)
  1. VIAGRA 100 MG PFIZER [Suspect]
     Indication: ERECTILE DYSFUNCTION
     Route: 048
     Dates: start: 20101110, end: 20120821

REACTIONS (3)
  - Deafness neurosensory [None]
  - Deafness unilateral [None]
  - Sudden hearing loss [None]
